FAERS Safety Report 5209574-4 (Version None)
Quarter: 2007Q1

REPORT INFORMATION
  Report Type: 
  Country: None (occurrence: None)
  Receive Date: 20070116
  Receipt Date: 20070104
  Transmission Date: 20070707
  Serious: Yes (Hospitalization)
  Sender: FDA-Public Use
  Company Number: FR-PFIZER INC-2007002143

PATIENT
  Age: 56 Year
  Sex: Male

DRUGS (4)
  1. MEDROL [Suspect]
     Dosage: DAILY DOSE:2MG
     Route: 048
  2. DIFFU K [Suspect]
     Dosage: TEXT:3 DF
     Route: 048
     Dates: start: 19970415, end: 20061115
  3. REMICADE [Suspect]
     Route: 042
     Dates: start: 20040730, end: 20061115
  4. METHOTREXATE [Suspect]
     Route: 048

REACTIONS (8)
  - CATARACT [None]
  - CUSHING'S SYNDROME [None]
  - GLAUCOMA [None]
  - HYPOKALAEMIA [None]
  - INTESTINAL PERFORATION [None]
  - LARGE INTESTINE PERFORATION [None]
  - OSTEOPOROSIS [None]
  - SMALL INTESTINAL PERFORATION [None]
